FAERS Safety Report 18272664 (Version 1)
Quarter: 2020Q3

REPORT INFORMATION
  Report Type: Spontaneous
  Country: US (occurrence: US)
  Receive Date: 20200916
  Receipt Date: 20200916
  Transmission Date: 20201103
  Serious: Yes (Hospitalization, Other)
  Sender: FDA-Public Use
  Company Number: US-VIIV HEALTHCARE LIMITED-US2020AMR182550

PATIENT
  Sex: Female

DRUGS (1)
  1. TIVICAY [Suspect]
     Active Substance: DOLUTEGRAVIR SODIUM
     Indication: HIV INFECTION
     Dosage: UNK

REACTIONS (6)
  - Pain [Unknown]
  - Failure to thrive [Unknown]
  - Arthralgia [Unknown]
  - Cardiac disorder [Unknown]
  - Hepatotoxicity [Unknown]
  - Hyperlipidaemia [Unknown]
